FAERS Safety Report 22918694 (Version 2)
Quarter: 2023Q4

REPORT INFORMATION
  Report Type: Spontaneous
  Country: US (occurrence: US)
  Receive Date: 20230907
  Receipt Date: 20231006
  Transmission Date: 20240110
  Serious: No
  Sender: FDA-Public Use
  Company Number: US-Calliditas-2023CAL01106

PATIENT
  Age: 27 Year
  Sex: Female

DRUGS (1)
  1. TARPEYO [Suspect]
     Active Substance: BUDESONIDE
     Indication: IgA nephropathy
     Dosage: 16 MG (4 MG CAPSULES) ONCE DAILY
     Route: 048
     Dates: start: 20230314

REACTIONS (5)
  - COVID-19 [Unknown]
  - Tremor [Unknown]
  - Fatigue [Unknown]
  - Peripheral swelling [Unknown]
  - Acne [Unknown]
